FAERS Safety Report 21283038 (Version 4)
Quarter: 2022Q3

REPORT INFORMATION
  Report Type: Report from Study
  Country: CN (occurrence: CN)
  Receive Date: 20220901
  Receipt Date: 20220926
  Transmission Date: 20221026
  Serious: Yes (Hospitalization)
  Sender: FDA-Public Use
  Company Number: CN-BRISTOL-MYERS SQUIBB COMPANY-2022-097595

PATIENT
  Age: 66 Year
  Sex: Male
  Weight: 78 kg

DRUGS (11)
  1. PLACEBO [Suspect]
     Active Substance: UNSPECIFIED INGREDIENT
     Indication: Prostate cancer
     Dosage: PRIOR TO THE ONSET OF THE EVENT, THE PATIENT RECEIVED HIS MOST RECENT DOSE ON 19-JUL-2022.?DOSE DELA
     Route: 042
     Dates: start: 20220607
  2. DOCETAXEL [Suspect]
     Active Substance: DOCETAXEL
     Indication: Prostate cancer
     Dosage: PRIOR TO THE ONSET OF THE EVENT, THE PATIENT RECEIVED HIS MOST RECENT DOSE ON 19-JUL-2022.?DOSE DELA
     Route: 065
     Dates: start: 20220607
  3. PREDNISOLONE [Concomitant]
     Active Substance: PREDNISOLONE
     Indication: Prostate cancer
     Dosage: PRIOR TO THE ONSET OF THE EVENT, THE PATIENT RECEIVED HIS MOST RECENT DOSE OF 10 MG ON 28-JUN-2022.
     Route: 065
     Dates: start: 20220607
  4. PREDNISOLONE [Concomitant]
     Active Substance: PREDNISOLONE
     Dosage: PRIOR TO THE ONSET OF THE EVENT, THE PATIENT RECEIVED HIS MOST RECENT DOSE OF 10 MG ON 06-AUG-2022.
     Route: 065
     Dates: start: 20220720
  5. PREGABALIN [Concomitant]
     Active Substance: PREGABALIN
     Indication: Product used for unknown indication
     Dosage: PREGABALIN CAPSULES?ONGOING
     Route: 048
     Dates: start: 20220516
  6. LACTULOSE [Concomitant]
     Active Substance: LACTULOSE
     Indication: Product used for unknown indication
     Dosage: LACTULOSE ORAL SOLUTION?ONGOING
     Route: 048
     Dates: start: 20220516
  7. AMLODIPINE BESYLATE [Concomitant]
     Active Substance: AMLODIPINE BESYLATE
     Indication: Product used for unknown indication
     Dosage: AMLODIPINE BESYLATE TABLETS?ONGOING
     Route: 048
     Dates: start: 2016
  8. OXYCODONE HYDROCHLORIDE [Concomitant]
     Active Substance: OXYCODONE HYDROCHLORIDE
     Indication: Product used for unknown indication
     Dosage: OXYCODONE HYDROCHLORIDE PROLONGED-RELEASE TABLETS?ONGOING
     Route: 048
     Dates: start: 20220516
  9. OXYCODONE AND ACETAMINOPHEN [Concomitant]
     Active Substance: ACETAMINOPHEN\OXYCODONE HYDROCHLORIDE
     Indication: Product used for unknown indication
     Dosage: OXYCODONE AND ACETAMINOPHEN TABLETS?ONGOING
     Route: 048
     Dates: start: 20220516
  10. DEXAMETHASONE SODIUM PHOSPHATE [Concomitant]
     Active Substance: DEXAMETHASONE SODIUM PHOSPHATE
     Indication: Product used for unknown indication
     Dosage: DEXAMETHASONE SODIUM PHOSPHATE INJECTION
     Route: 042
     Dates: start: 20220719, end: 20220719
  11. TRIPTORELIN PAMOATE [Concomitant]
     Active Substance: TRIPTORELIN PAMOATE
     Indication: Product used for unknown indication
     Route: 042
     Dates: start: 20220719, end: 20220719

REACTIONS (1)
  - Chest discomfort [Recovered/Resolved]

NARRATIVE: CASE EVENT DATE: 20220720
